FAERS Safety Report 25446167 (Version 1)
Quarter: 2025Q2

REPORT INFORMATION
  Report Type: Spontaneous
  Country: US (occurrence: US)
  Receive Date: 20250617
  Receipt Date: 20250617
  Transmission Date: 20250716
  Serious: No
  Sender: BRECKENRIDGE PHARMACEUTICAL, INC.
  Company Number: US-Breckenridge Pharmaceutical, Inc.-2178876

PATIENT
  Age: 84 Year
  Sex: Female
  Weight: 74.545 kg

DRUGS (1)
  1. RIVASTIGMINE TRANSDERMAL SYSTEM [Suspect]
     Active Substance: RIVASTIGMINE

REACTIONS (3)
  - Application site erythema [Recovered/Resolved]
  - Application site dermatitis [Recovered/Resolved]
  - Pruritus [Recovered/Resolved]
